FAERS Safety Report 8005745-2 (Version None)
Quarter: 2011Q4

REPORT INFORMATION
  Report Type: 
  Country: None (occurrence: None)
  Receive Date: 20111223
  Receipt Date: 20111219
  Transmission Date: 20120403
  Serious: Yes (Other)
  Sender: FDA-Public Use
  Company Number: US-ROCHE-784478

PATIENT
  Sex: Female
  Weight: 49.94 kg

DRUGS (3)
  1. METHYLPHENIDATE [Concomitant]
  2. ACCUTANE [Suspect]
     Route: 065
  3. ACCUTANE [Suspect]
     Indication: PRODUCT USED FOR UNKNOWN INDICATION
     Route: 065

REACTIONS (5)
  - COLITIS ULCERATIVE [None]
  - SACROILIITIS [None]
  - INFLAMMATORY BOWEL DISEASE [None]
  - DEPRESSION [None]
  - IRRITABLE BOWEL SYNDROME [None]
